FAERS Safety Report 25958254 (Version 3)
Quarter: 2025Q4

REPORT INFORMATION
  Report Type: Spontaneous
  Country: EU (occurrence: EU)
  Receive Date: 20251024
  Receipt Date: 20251111
  Transmission Date: 20260118
  Serious: Yes (Death, Hospitalization, Other)
  Sender: MYLAN
  Company Number: EU-002147023-NVSC2025NO155378

PATIENT
  Age: 69 Year
  Sex: Female

DRUGS (13)
  1. EVEROLIMUS [Suspect]
     Active Substance: EVEROLIMUS
     Indication: Breast cancer
     Dosage: UNK
  2. LETROZOLE [Suspect]
     Active Substance: LETROZOLE
     Indication: Breast cancer
     Dosage: UNK
  3. LETROZOLE [Suspect]
     Active Substance: LETROZOLE
     Dosage: UNK
  4. LETROZOLE [Suspect]
     Active Substance: LETROZOLE
     Dosage: UNK
  5. ERIBULIN [Suspect]
     Active Substance: ERIBULIN
     Indication: Product used for unknown indication
     Dosage: UNK
  6. ERIBULIN [Suspect]
     Active Substance: ERIBULIN
     Dosage: UNK
  7. FULVESTRANT [Suspect]
     Active Substance: FULVESTRANT
     Indication: Metastases to bone
     Dosage: UNK
  8. DEXAMETHASONE [Suspect]
     Active Substance: DEXAMETHASONE
     Indication: Product used for unknown indication
     Dosage: UNK
  9. DECADRON (DEXAMETHASONE SODIUM PHOSPHATE) [Suspect]
     Active Substance: DEXAMETHASONE SODIUM PHOSPHATE
     Indication: Product used for unknown indication
     Dosage: UNK
  10. CAPECITABINE [Suspect]
     Active Substance: CAPECITABINE
     Indication: Product used for unknown indication
     Dosage: UNK
  11. KISQALI [Suspect]
     Active Substance: RIBOCICLIB SUCCINATE
     Indication: Breast cancer
     Dosage: UNK
  12. ABEMACICLIB [Suspect]
     Active Substance: ABEMACICLIB
     Indication: Metastases to bone
     Dosage: UNK
  13. PALBOCICLIB [Suspect]
     Active Substance: PALBOCICLIB
     Indication: Metastases to bone
     Dosage: UNK

REACTIONS (19)
  - Pneumocystis jirovecii pneumonia [Fatal]
  - Metastases to bone [Fatal]
  - Breast cancer [Fatal]
  - Mania [Unknown]
  - Gastrointestinal toxicity [Unknown]
  - Angina pectoris [Unknown]
  - Metastases to central nervous system [Unknown]
  - Generalised tonic-clonic seizure [Unknown]
  - Metastases to liver [Unknown]
  - Transaminases increased [Unknown]
  - Metastases to lung [Unknown]
  - Hemiparesis [Unknown]
  - Pseudocirrhosis [Unknown]
  - Stomatitis [Unknown]
  - Neutropenia [Unknown]
  - Aggression [Unknown]
  - Pneumonitis [Unknown]
  - Drug intolerance [Unknown]
  - Hepatic steatosis [Unknown]

NARRATIVE: CASE EVENT DATE: 20220901
